FAERS Safety Report 13738921 (Version 1)
Quarter: 2017Q3

REPORT INFORMATION
  Report Type: Spontaneous
  Country: US (occurrence: US)
  Receive Date: 20170710
  Receipt Date: 20170710
  Transmission Date: 20171127
  Serious: Yes (Hospitalization, Other)
  Sender: FDA-Public Use
  Company Number: US-SAOL THERAPEUTICS-2017SAO00617

PATIENT
  Age: 28 Year
  Sex: Male
  Weight: 104.31 kg

DRUGS (14)
  1. MELATONIN [Concomitant]
     Active Substance: MELATONIN
  2. POLYETHYLENE GLYCOL [Concomitant]
     Active Substance: POLYETHYLENE GLYCOLS
  3. ACETAMINOPHEN. [Concomitant]
     Active Substance: ACETAMINOPHEN
  4. LIDOCAINE. [Concomitant]
     Active Substance: LIDOCAINE
  5. LIORESAL [Suspect]
     Active Substance: BACLOFEN
     Indication: MUSCLE SPASTICITY
     Dosage: 1000 ?G, \DAY
     Route: 037
  6. BENZOCAINE. [Concomitant]
     Active Substance: BENZOCAINE
  7. OXYBUTYNIN CHLORIDE. [Concomitant]
     Active Substance: OXYBUTYNIN CHLORIDE
  8. ASCORBIC ACID. [Concomitant]
     Active Substance: ASCORBIC ACID
  9. ONDANSETRON [Concomitant]
     Active Substance: ONDANSETRON
  10. VENLAFAXINE [Concomitant]
     Active Substance: VENLAFAXINE HYDROCHLORIDE
  11. BACLOFEN. [Concomitant]
     Active Substance: BACLOFEN
     Route: 048
  12. PREGABLIN [Concomitant]
  13. LIORESAL [Suspect]
     Active Substance: BACLOFEN
     Indication: SPINAL CORD INJURY
     Dosage: 1010.5 ?G, \DAY
     Route: 037
     Dates: start: 20160922
  14. DOCUSATE SODIUM. [Concomitant]
     Active Substance: DOCUSATE SODIUM

REACTIONS (6)
  - Drug withdrawal syndrome [Unknown]
  - Agitation [Unknown]
  - Asthenia [Unknown]
  - Device alarm issue [Unknown]
  - Heart rate increased [Unknown]
  - Treatment noncompliance [Unknown]

NARRATIVE: CASE EVENT DATE: 20170326
